FAERS Safety Report 9512209 (Version 1)
Quarter: 2013Q1

REPORT INFORMATION
  Report Type: Spontaneous
  Country: US (occurrence: None)
  Receive Date: 20130305
  Receipt Date: 20130305
  Transmission Date: 20140127
  Serious: Yes (Hospitalization)
  Sender: FDA-Public Use
  Company Number: 163-21880-12051565

PATIENT
  Age: 69 Year
  Sex: Female
  Weight: 58.06 kg

DRUGS (10)
  1. REVLIMID [Suspect]
     Indication: PLASMA CELL MYELOMA
     Dosage: DAILY X 21 DAYS
     Route: 048
     Dates: start: 20120425
  2. ALLOPURINOL [Concomitant]
  3. CALCIUM (CALCIUM) [Concomitant]
  4. MELPHALAN [Concomitant]
  5. PREDNISONE (PREDNISONE) [Concomitant]
  6. PRILOSEC [Concomitant]
  7. SOTALOL [Concomitant]
  8. VITAMIN D (ERGOCALCIFEROL) [Concomitant]
  9. XALATAN (LATANOPROST) [Concomitant]
  10. ZODRYL (ALL OTHER THERAPEUTIC PRODUCTS) [Concomitant]

REACTIONS (2)
  - White blood cell count decreased [None]
  - Urinary tract infection [None]
